APPROVED DRUG PRODUCT: CYCLOSPORINE
Active Ingredient: CYCLOSPORINE
Strength: 100MG
Dosage Form/Route: CAPSULE;ORAL
Application: A065017 | Product #001 | TE Code: AB1
Applicant: SANDOZ INC
Approved: Jan 13, 2000 | RLD: No | RS: No | Type: RX